FAERS Safety Report 8984058 (Version 1)
Quarter: 2012Q4

REPORT INFORMATION
  Report Type: Spontaneous
  Country: US (occurrence: None)
  Receive Date: 20121213
  Receipt Date: 20121213
  Transmission Date: 20130627
  Serious: Yes (Other)
  Sender: FDA-Public Use
  Company Number: FK201203714

PATIENT
  Sex: Male

DRUGS (4)
  1. FLUOROURACIL [Suspect]
     Indication: PRODUCT USED FOR UNKNOWN INDICATION
     Dosage: cyclical
     Route: 042
  2. LEUCOVORIN CALCIUM [Suspect]
     Indication: PRODUCT USED FOR UNKNOWN INDICATION
     Dosage: cyclical
     Route: 042
  3. ELOXATIN [Suspect]
     Dosage: cyclical
     Route: 042
  4. AVASTIN (BEVACIZUMAB) [Suspect]
     Dosage: cyclical
     Route: 042

REACTIONS (1)
  - Renal failure [None]
